FAERS Safety Report 5373473-8 (Version None)
Quarter: 2007Q2

REPORT INFORMATION
  Report Type: 
  Country: None (occurrence: None)
  Receive Date: 20070626
  Receipt Date: 20070626
  Transmission Date: 20071010
  Serious: No
  Sender: FDA-Public Use
  Company Number: None

PATIENT

DRUGS (2)
  1. ACETYLCYSTEINE [Suspect]
     Indication: DIAGNOSTIC PROCEDURE
     Dosage: 600 MG BID PO
     Route: 048
     Dates: start: 20070417, end: 20070417
  2. ACETYLCYSTEINE [Suspect]
     Indication: PROPHYLAXIS
     Dosage: 600 MG BID PO
     Route: 048
     Dates: start: 20070417, end: 20070417

REACTIONS (1)
  - INCORRECT ROUTE OF DRUG ADMINISTRATION [None]
